FAERS Safety Report 9462240 (Version 2)
Quarter: 2013Q3

REPORT INFORMATION
  Report Type: Spontaneous
  Country: US (occurrence: None)
  Receive Date: 20130813
  Receipt Date: 20130903
  Transmission Date: 20140515
  Serious: Yes (Other)
  Sender: FDA-Public Use
  Company Number: SYM-2013-08402

PATIENT
  Sex: 0

DRUGS (2)
  1. WELLBUTRIN (BUPROPION HYDROCHLORIDE) (BUPROPION HYDROCHLORIDE) [Suspect]
     Indication: DEPRESSION
     Route: 064
     Dates: start: 201304
  2. WELLBUTRIN (BUPROPION HYDROCHLORIDE) (BUPROPION HYDROCHLORIDE) [Suspect]
     Indication: ANXIETY
     Route: 064
     Dates: start: 201304

REACTIONS (3)
  - Sepsis neonatal [None]
  - Tachypnoea [None]
  - Maternal drugs affecting foetus [None]
